FAERS Safety Report 5192669-1 (Version None)
Quarter: 2006Q4

REPORT INFORMATION
  Report Type: 
  Country: None (occurrence: None)
  Receive Date: 20061220
  Receipt Date: 20061214
  Transmission Date: 20070319
  Serious: Yes (Hospitalization)
  Sender: FDA-Public Use
  Company Number: 233388

PATIENT
  Age: 74 Year
  Sex: Male

DRUGS (12)
  1. AVASTIN [Suspect]
     Indication: COLORECTAL CANCER METASTATIC
     Dosage: 465 MG, Q14D, INTRAVENOUS
     Route: 042
     Dates: start: 20060329, end: 20061101
  2. CETUXIMAB (CETUXIMAB) [Suspect]
     Indication: COLORECTAL CANCER METASTATIC
     Dosage: 538 MG, 1/WEEK, INTRAVENOUS
     Route: 042
     Dates: start: 20060329, end: 20061101
  3. FLUOROURACIL [Suspect]
     Indication: COLORECTAL CANCER METASTATIC
     Dosage: SEE IMAGE
     Dates: start: 20060329, end: 20061101
  4. LEUCOVORIN CALCIUM [Suspect]
     Indication: COLORECTAL CANCER METASTATIC
     Dosage: 860 MG, Q14D, INTRAVENOUS
     Route: 042
     Dates: start: 20060329, end: 20061101
  5. CORTISONE (CORTISONE ACETATE) [Concomitant]
  6. FLUDROCORTISONE (FLUDROCORTISONE ACETATE) [Concomitant]
  7. COUMADIN [Concomitant]
  8. CIPRO [Concomitant]
  9. PROSCAR [Concomitant]
  10. ZOLOFT [Concomitant]
  11. PHENERGAN (PROMETHAZINE HYDROCHLORIDE) [Concomitant]
  12. TYLENOL (CAPLET) [Concomitant]

REACTIONS (8)
  - COMPUTERISED TOMOGRAM ABNORMAL [None]
  - GASTROENTERITIS [None]
  - HAEMOGLOBIN DECREASED [None]
  - PERITONEAL NEOPLASM [None]
  - RED BLOOD CELL COUNT DECREASED [None]
  - SMALL INTESTINAL OBSTRUCTION [None]
  - WHITE BLOOD CELL COUNT DECREASED [None]
  - X-RAY GASTROINTESTINAL TRACT ABNORMAL [None]
